FAERS Safety Report 8322204-8 (Version None)
Quarter: 2012Q2

REPORT INFORMATION
  Report Type: 
  Country: None (occurrence: None)
  Receive Date: 20120430
  Receipt Date: 20051207
  Transmission Date: 20120825
  Serious: Yes (Hospitalization)
  Sender: FDA-Public Use
  Company Number: FR-ROCHE-GNE220334

PATIENT
  Age: 60 Year
  Sex: Male

DRUGS (7)
  1. VFEND [Concomitant]
     Indication: PROPHYLAXIS
     Route: 042
     Dates: start: 20050301, end: 20050405
  2. VINCRISTINE [Concomitant]
     Indication: CHRONIC LYMPHOCYTIC LEUKAEMIA
     Dates: start: 20050323, end: 20050326
  3. MABTHERA [Suspect]
     Indication: PRODUCT USED FOR UNKNOWN INDICATION
     Route: 042
     Dates: start: 20050323, end: 20050326
  4. IDARUBICIN HYDROCHLORIDE [Suspect]
     Indication: CHRONIC LYMPHOCYTIC LEUKAEMIA
     Route: 042
     Dates: start: 20050323, end: 20050326
  5. VALGANCICLOVIR [Suspect]
     Indication: VIRAL INFECTION
     Route: 042
     Dates: start: 20050326, end: 20050331
  6. DEXAMETHASONE [Concomitant]
     Indication: CHRONIC LYMPHOCYTIC LEUKAEMIA
  7. NEORECORMON [Concomitant]
     Indication: ANAEMIA
     Route: 058
     Dates: start: 20050326

REACTIONS (1)
  - FEBRILE BONE MARROW APLASIA [None]
